FAERS Safety Report 5552196-6 (Version None)
Quarter: 2007Q4

REPORT INFORMATION
  Report Type: 
  Country: None (occurrence: None)
  Receive Date: 20071212
  Receipt Date: 20070611
  Transmission Date: 20080405
  Serious: No
  Sender: FDA-Public Use
  Company Number: US-AMGEN-KDL229139

PATIENT
  Sex: Female

DRUGS (3)
  1. ENBREL [Suspect]
     Indication: RHEUMATOID ARTHRITIS
     Route: 058
     Dates: start: 20030117
  2. PLAQUENIL [Concomitant]
     Route: 048
     Dates: start: 19970101
  3. METHOTREXATE [Concomitant]
     Route: 048
     Dates: start: 19980101

REACTIONS (4)
  - FOOT FRACTURE [None]
  - HYPOAESTHESIA [None]
  - IMPAIRED HEALING [None]
  - PARAESTHESIA [None]
